FAERS Safety Report 12961404 (Version 2)
Quarter: 2016Q4

REPORT INFORMATION
  Report Type: Report from Study
  Country: NL (occurrence: NL)
  Receive Date: 20161121
  Receipt Date: 20161220
  Transmission Date: 20170207
  Serious: Yes (Other)
  Sender: FDA-Public Use
  Company Number: NL-VERTEX PHARMACEUTICALS-2016-006414

PATIENT
  Age: 19 Year
  Sex: Male
  Weight: 57 kg

DRUGS (13)
  1. MACROGOL [Concomitant]
     Active Substance: POLYETHYLENE GLYCOLS
     Indication: CYSTIC FIBROSIS
     Dosage: 1 DD 20 GR
  2. PANZYTRAT [Concomitant]
     Indication: CYSTIC FIBROSIS
     Dosage: 10 DF, PER DAY
     Route: 048
  3. AVAMYS [Concomitant]
     Active Substance: FLUTICASONE FUROATE
     Indication: CYSTIC FIBROSIS
     Dosage: 1 DD
  4. LANTUS [Concomitant]
     Active Substance: INSULIN GLARGINE
     Indication: CYSTIC FIBROSIS
     Route: 058
  5. FLUCLOX [Concomitant]
     Active Substance: FLUCLOXACILLIN
  6. PULMOZYME [Concomitant]
     Active Substance: DORNASE ALFA
     Indication: CYSTIC FIBROSIS
     Dosage: 1 DD NEBULISE
  7. ORKAMBI [Suspect]
     Active Substance: IVACAFTOR\LUMACAFTOR
     Indication: CYSTIC FIBROSIS
     Dosage: 2 DF, BID (400/ 250MG)
     Route: 048
     Dates: start: 20161108
  8. NASOCORT [Concomitant]
     Active Substance: BUDESONIDE
  9. NEBUSAL [Concomitant]
     Indication: CYSTIC FIBROSIS
     Dosage: 2 DF, 4 ML
  10. VENTOLIN [Concomitant]
     Active Substance: ALBUTEROL SULFATE
     Indication: CYSTIC FIBROSIS
     Dosage: 1 DD INHALATION
  11. URSOCHOL [Concomitant]
     Active Substance: URSODIOL
     Indication: CYSTIC FIBROSIS
     Dosage: 2 DD 300
  12. AQUADEKS [Concomitant]
     Active Substance: MINERALS\VITAMINS
     Indication: CYSTIC FIBROSIS
     Dosage: 1 DD 2
  13. NEXIUM [Concomitant]
     Active Substance: ESOMEPRAZOLE MAGNESIUM
     Dosage: 1 DD 40

REACTIONS (6)
  - Vertigo [Recovered/Resolved]
  - Hyperhidrosis [Recovered/Resolved]
  - Blood glucose decreased [Recovered/Resolved]
  - Faeces hard [Recovered/Resolved]
  - Abdominal pain [Recovered/Resolved]
  - Respiratory distress [Recovered/Resolved]

NARRATIVE: CASE EVENT DATE: 20161109
